FAERS Safety Report 12574441 (Version 1)
Quarter: 2016Q3

REPORT INFORMATION
  Report Type: Spontaneous
  Country: US (occurrence: None)
  Receive Date: 20160719
  Receipt Date: 20160719
  Transmission Date: 20161109
  Serious: No
  Sender: FDA-Public Use
  Company Number: None

PATIENT
  Age: 63 Year
  Sex: Male
  Weight: 84.8 kg

DRUGS (1)
  1. BEVACIZUMAB (RHUMAB VEGF) [Suspect]
     Active Substance: BEVACIZUMAB
     Dates: end: 20160602

REACTIONS (4)
  - Generalised tonic-clonic seizure [None]
  - Cerebral infarction [None]
  - Partial seizures [None]
  - Asthenia [None]

NARRATIVE: CASE EVENT DATE: 20160607
